FAERS Safety Report 8470411-6 (Version None)
Quarter: 2012Q2

REPORT INFORMATION
  Report Type: 
  Country: None (occurrence: None)
  Receive Date: 20120620
  Receipt Date: 20120606
  Transmission Date: 20120825
  Serious: Yes (Other)
  Sender: FDA-Public Use
  Company Number: US-SEPTODONT-201200592

PATIENT
  Age: 86 Year
  Sex: Male

DRUGS (3)
  1. UNSPECIFIED TOPICAL ANAESTHETIC [Concomitant]
  2. LIDOCAINE HYDROCHLORIDE 2% W/ EPINEPHRINE INJ [Suspect]
     Indication: LOCAL ANAESTHESIA
     Dosage: 0.5 CARTRIDGE DENTAL
     Route: 004
     Dates: start: 20120507, end: 20120507
  3. MEPIVACAINE HYDROCHLORIDE [Suspect]
     Indication: LOCAL ANAESTHESIA
     Dosage: 1.5 CARTRIDGE DENTAL
     Route: 004
     Dates: start: 20120507, end: 20120507

REACTIONS (6)
  - DISCOMFORT [None]
  - DYSPNOEA [None]
  - TREMOR [None]
  - ELECTRIC SHOCK [None]
  - DEPRESSED LEVEL OF CONSCIOUSNESS [None]
  - AGITATION [None]
